FAERS Safety Report 16076932 (Version 1)
Quarter: 2019Q1

REPORT INFORMATION
  Report Type: Spontaneous
  Country: US (occurrence: US)
  Receive Date: 20190214
  Receipt Date: 20190214
  Transmission Date: 20190418
  Serious: No
  Sender: FDA-Public Use
  Company Number: None

PATIENT
  Age: 89 Year
  Sex: Male

DRUGS (1)
  1. ZYTIGA TAB 500MG [Suspect]
     Active Substance: ABIRATERONE ACETATE
     Route: 048
     Dates: start: 201802, end: 201902

REACTIONS (4)
  - Metastases to central nervous system [None]
  - Disease progression [None]
  - Metastases to bladder [None]
  - Prostatic specific antigen increased [None]

NARRATIVE: CASE EVENT DATE: 20190207
